FAERS Safety Report 20369914 (Version 1)
Quarter: 2022Q1

REPORT INFORMATION
  Report Type: Report from Study
  Country: IT (occurrence: IT)
  Receive Date: 20220124
  Receipt Date: 20220124
  Transmission Date: 20220423
  Serious: Yes (Other)
  Sender: FDA-Public Use
  Company Number: None

PATIENT
  Age: 63 Year
  Sex: Male

DRUGS (1)
  1. ATORVASTATIN CALCIUM [Suspect]
     Active Substance: ATORVASTATIN CALCIUM
     Indication: Hypercholesterolaemia
     Dosage: 20 MG, 1X/DAY
     Route: 048

REACTIONS (1)
  - Erythema [Recovered/Resolved]

NARRATIVE: CASE EVENT DATE: 20200520
